FAERS Safety Report 24144926 (Version 2)
Quarter: 2024Q4

REPORT INFORMATION
  Report Type: Spontaneous
  Country: JP (occurrence: JP)
  Receive Date: 20240729
  Receipt Date: 20241129
  Transmission Date: 20250114
  Serious: Yes (Hospitalization)
  Sender: BOEHRINGER INGELHEIM
  Company Number: JP-NBI-2024-BI-041135

PATIENT
  Age: 76 Year
  Sex: Female
  Weight: 32.0 kg

DRUGS (8)
  1. OFEV [Suspect]
     Active Substance: NINTEDANIB
     Indication: Interstitial lung disease
     Route: 048
     Dates: start: 20221101
  2. OFEV [Suspect]
     Active Substance: NINTEDANIB
     Route: 048
     Dates: start: 20240708, end: 20240720
  3. OFEV [Suspect]
     Active Substance: NINTEDANIB
     Route: 048
     Dates: start: 20240903
  4. PREDONINE [Suspect]
     Active Substance: PREDNISOLONE
     Indication: Interstitial lung disease
     Route: 048
     Dates: start: 20220327
  5. PREDONINE [Suspect]
     Active Substance: PREDNISOLONE
     Route: 048
  6. PREDONINE [Suspect]
     Active Substance: PREDNISOLONE
     Route: 048
     Dates: start: 20240704
  7. NEORAL [Suspect]
     Active Substance: CYCLOSPORINE
     Indication: Interstitial lung disease
     Route: 048
     Dates: start: 20220421
  8. NEORAL [Suspect]
     Active Substance: CYCLOSPORINE
     Route: 048
     Dates: start: 20240704

REACTIONS (4)
  - Appendicitis [Recovered/Resolved]
  - Impaired healing [Recovered/Resolved]
  - Postoperative wound infection [Not Recovered/Not Resolved]
  - Unevaluable event [Unknown]

NARRATIVE: CASE EVENT DATE: 20240630
